FAERS Safety Report 9948771 (Version 3)
Quarter: 2014Q3

REPORT INFORMATION
  Report Type: Spontaneous
  Country: US (occurrence: None)
  Receive Date: 20140122
  Receipt Date: 20140722
  Transmission Date: 20150326
  Serious: Yes (Other)
  Sender: FDA-Public Use
  Company Number: AEGR000186

PATIENT
  Age: 61 Year
  Sex: Female
  Weight: 83.9 kg

DRUGS (13)
  1. NIACIN (NICOTINIC ACID) [Concomitant]
  2. LOPID [Suspect]
     Active Substance: GEMFIBROZIL
     Indication: PRODUCT USED FOR UNKNOWN INDICATION
     Route: 048
     Dates: end: 2013
  3. ZETIA [Concomitant]
     Active Substance: EZETIMIBE
  4. TOPROL (METOPROLOL SUCCINATE) [Concomitant]
  5. ASA (ASA) [Concomitant]
  6. WELLBUTRIN [Concomitant]
     Active Substance: BUPROPION HYDROCHLORIDE
  7. BILE ACID SEQUESTRANTS [Concomitant]
  8. JUXTAPID [Suspect]
     Active Substance: LOMITAPIDE MESYLATE
     Indication: TYPE IIA HYPERLIPIDAEMIA
     Route: 048
     Dates: start: 20130716, end: 201310
  9. EFFEXOR [Concomitant]
     Active Substance: VENLAFAXINE HYDROCHLORIDE
  10. FISH OIL (FISH OIL) [Concomitant]
     Active Substance: FISH OIL
  11. NIASPAN [Suspect]
     Active Substance: NIACIN
     Indication: PRODUCT USED FOR UNKNOWN INDICATION
     Route: 048
     Dates: end: 2013
  12. QUESTRAN (COLESTYRAMINE) [Concomitant]
  13. FIBRATES [Concomitant]
     Active Substance: UNSPECIFIED INGREDIENT

REACTIONS (3)
  - Aspartate aminotransferase increased [None]
  - Liver function test abnormal [None]
  - Alanine aminotransferase increased [None]

NARRATIVE: CASE EVENT DATE: 20131018
